FAERS Safety Report 12853313 (Version 1)
Quarter: 2016Q4

REPORT INFORMATION
  Report Type: Spontaneous
  Country: US (occurrence: US)
  Receive Date: 20161017
  Receipt Date: 20161017
  Transmission Date: 20170207
  Serious: Yes (Hospitalization, Other)
  Sender: FDA-Public Use
  Company Number: US-ELI_LILLY_AND_COMPANY-US201610001361

PATIENT
  Age: 71 Year
  Sex: Female

DRUGS (12)
  1. LASIX [Concomitant]
     Active Substance: FUROSEMIDE
     Dosage: UNK, UNKNOWN
  2. SOMA [Concomitant]
     Active Substance: CARISOPRODOL
     Dosage: UNK, UNKNOWN
  3. PREDNISONE. [Concomitant]
     Active Substance: PREDNISONE
     Indication: PAIN
     Dosage: UNK, UNKNOWN
  4. LISINOPRIL                         /00894002/ [Concomitant]
     Active Substance: LISINOPRIL
     Dosage: UNK, UNKNOWN
  5. VANCOMYCIN [Suspect]
     Active Substance: VANCOMYCIN
     Indication: PRODUCT USED FOR UNKNOWN INDICATION
     Dosage: UNK, UNKNOWN
     Route: 065
  6. WARFARIN [Concomitant]
     Active Substance: WARFARIN
     Dosage: UNK, UNKNOWN
  7. HUMULIN N [Suspect]
     Active Substance: INSULIN HUMAN
     Indication: TYPE 2 DIABETES MELLITUS
     Dosage: UNK, UNKNOWN
     Route: 065
     Dates: start: 2000
  8. SIMVASTATIN. [Concomitant]
     Active Substance: SIMVASTATIN
     Dosage: UNK, UNKNOWN
  9. VICTOZA [Concomitant]
     Active Substance: LIRAGLUTIDE
     Dosage: UNK, UNKNOWN
  10. NOVOLIN [Concomitant]
     Active Substance: INSULIN HUMAN
     Dosage: UNK, UNKNOWN
  11. LEVEMIR [Concomitant]
     Active Substance: INSULIN DETEMIR
     Dosage: UNK, UNKNOWN
  12. PREDNISONE. [Concomitant]
     Active Substance: PREDNISONE
     Indication: INFLAMMATION

REACTIONS (15)
  - Deep vein thrombosis [Recovered/Resolved]
  - Osteoporosis [Recovered/Resolved]
  - Blood glucose increased [Unknown]
  - Back pain [Not Recovered/Not Resolved]
  - Deep vein thrombosis [Recovered/Resolved]
  - Fall [Recovered/Resolved]
  - Sepsis [Recovered/Resolved]
  - Head injury [Recovered/Resolved]
  - Diabetic neuropathy [Not Recovered/Not Resolved]
  - Ankle fracture [Recovered/Resolved]
  - Asthma [Recovered/Resolved]
  - Arthropod bite [Recovered/Resolved]
  - Back injury [Not Recovered/Not Resolved]
  - Pneumonia staphylococcal [Recovered/Resolved]
  - Drug hypersensitivity [Recovered/Resolved]

NARRATIVE: CASE EVENT DATE: 2000
